FAERS Safety Report 6906819-7 (Version None)
Quarter: 2010Q3

REPORT INFORMATION
  Report Type: 
  Country: None (occurrence: None)
  Receive Date: 20100804
  Receipt Date: 20100726
  Transmission Date: 20110219
  Serious: Yes (Hospitalization, Other)
  Sender: FDA-Public Use
  Company Number: US-ELI_LILLY_AND_COMPANY-US201007006472

PATIENT
  Age: 62 Year
  Sex: Female

DRUGS (4)
  1. HUMALOG MIX 75/25 [Suspect]
     Indication: DIABETES MELLITUS
     Dosage: UNK, AS NEEDED
  2. HUMALOG MIX 75/25 [Suspect]
     Dosage: UNK, AS NEEDED
  3. HUMALOG MIX 75/25 [Suspect]
     Dosage: UNK, AS NEEDED
  4. METFORMIN HCL [Concomitant]
     Dosage: 2 D/F, DAILY (1/D)

REACTIONS (3)
  - COLON CANCER [None]
  - DRUG DISPENSING ERROR [None]
  - HYPOAESTHESIA [None]
